FAERS Safety Report 24943541 (Version 2)
Quarter: 2025Q3

REPORT INFORMATION
  Report Type: Spontaneous
  Country: EU (occurrence: EU)
  Receive Date: 20250207
  Receipt Date: 20250803
  Transmission Date: 20251021
  Serious: Yes (Other)
  Sender: ALEXION PHARMACEUTICALS
  Company Number: EU-AstraZeneca-CH-00748836A

PATIENT
  Sex: Female

DRUGS (10)
  1. IMFINZI [Suspect]
     Active Substance: DURVALUMAB
     Indication: Neoplasm malignant
     Dates: start: 20221220, end: 20241021
  2. IMFINZI [Suspect]
     Active Substance: DURVALUMAB
     Dates: start: 20230227, end: 20230517
  3. IMFINZI [Suspect]
     Active Substance: DURVALUMAB
     Dates: start: 20230619, end: 20230717
  4. IMFINZI [Suspect]
     Active Substance: DURVALUMAB
     Dates: start: 20230814, end: 20231009
  5. IMFINZI [Suspect]
     Active Substance: DURVALUMAB
     Dates: start: 20231106, end: 20240108
  6. IMFINZI [Suspect]
     Active Substance: DURVALUMAB
     Dates: start: 20230205, end: 20230403
  7. IMFINZI [Suspect]
     Active Substance: DURVALUMAB
     Dates: start: 20240603, end: 20240826
  8. IMFINZI [Suspect]
     Active Substance: DURVALUMAB
     Dates: start: 20240923, end: 20241021
  9. CARBOPLATIN [Concomitant]
     Active Substance: CARBOPLATIN
     Indication: Neoplasm malignant
     Dates: start: 20221129, end: 20230201
  10. ETOPOSIDE [Concomitant]
     Active Substance: ETOPOSIDE
     Indication: Neoplasm malignant
     Dates: start: 20221129, end: 20230201

REACTIONS (2)
  - Blood creatinine increased [Recovered/Resolved with Sequelae]
  - Tumour pseudoprogression [Unknown]

NARRATIVE: CASE EVENT DATE: 20221120
